FAERS Safety Report 19860397 (Version 4)
Quarter: 2022Q1

REPORT INFORMATION
  Report Type: Report from Study
  Country: DE (occurrence: DE)
  Receive Date: 20210920
  Receipt Date: 20220301
  Transmission Date: 20220423
  Serious: Yes (Hospitalization, Disabling)
  Sender: FDA-Public Use
  Company Number: DE-NXDC-GLE-0022-2021

PATIENT
  Age: 56 Year
  Sex: Female
  Weight: 69 kg

DRUGS (10)
  1. AMINOLEVULINIC ACID HYDROCHLORIDE [Suspect]
     Active Substance: AMINOLEVULINIC ACID HYDROCHLORIDE
     Indication: Glioblastoma
     Route: 048
     Dates: start: 20210906, end: 20210906
  2. DEVICE [Suspect]
     Active Substance: DEVICE
     Indication: Glioblastoma
     Dates: start: 20210906, end: 20210906
  3. DEVICE [Suspect]
     Active Substance: DEVICE
     Indication: Glioblastoma
  4. DEVICE [Suspect]
     Active Substance: DEVICE
     Indication: Glioblastoma
  5. DEVICE [Suspect]
     Active Substance: DEVICE
     Indication: Glioblastoma
  6. DEVICE [Suspect]
     Active Substance: DEVICE
     Indication: Glioblastoma
  7. LEVETIRACETAM [Concomitant]
     Active Substance: LEVETIRACETAM
  8. AMLODIPINE BESYLATE [Concomitant]
     Active Substance: AMLODIPINE BESYLATE
  9. VALSARTAN [Concomitant]
     Active Substance: VALSARTAN
  10. DEXAMETHASONE [Concomitant]
     Active Substance: DEXAMETHASONE

REACTIONS (1)
  - Brain oedema [Recovering/Resolving]

NARRATIVE: CASE EVENT DATE: 20210910
